FAERS Safety Report 13472754 (Version 2)
Quarter: 2017Q2

REPORT INFORMATION
  Report Type: Spontaneous
  Country: JP (occurrence: JP)
  Receive Date: 20170424
  Receipt Date: 20170424
  Transmission Date: 20170830
  Serious: No
  Sender: FDA-Public Use
  Company Number: JP-ABBVIE-17K-087-1951871-00

PATIENT
  Sex: Female

DRUGS (1)
  1. HUMIRA [Suspect]
     Active Substance: ADALIMUMAB
     Indication: PSORIASIS
     Route: 058
     Dates: start: 2015

REACTIONS (4)
  - Cell marker increased [Not Recovered/Not Resolved]
  - Rhinalgia [Not Recovered/Not Resolved]
  - Rhinitis [Not Recovered/Not Resolved]
  - Cell marker increased [Not Recovered/Not Resolved]

NARRATIVE: CASE EVENT DATE: 20161208
